FAERS Safety Report 18386960 (Version 1)
Quarter: 2020Q4

REPORT INFORMATION
  Report Type: Spontaneous
  Country: US (occurrence: US)
  Receive Date: 20201014
  Receipt Date: 20201014
  Transmission Date: 20210114
  Serious: Yes (Hospitalization)
  Sender: FDA-Public Use
  Company Number: None

PATIENT
  Age: 65 Year
  Sex: Female

DRUGS (5)
  1. EVEROLIMUS 0.75MG TAB [Suspect]
     Active Substance: EVEROLIMUS
     Indication: IMMUNE THROMBOCYTOPENIA
     Dosage: 12 TAB (9 MG)
     Route: 048
     Dates: start: 20200426
  2. ASACOL HD [Suspect]
     Active Substance: MESALAMINE
  3. LEVOTHYROXIN [Suspect]
     Active Substance: LEVOTHYROXINE
  4. UCERIS [Suspect]
     Active Substance: BUDESONIDE
  5. LOPERAMIDE [Suspect]
     Active Substance: LOPERAMIDE

REACTIONS (2)
  - Cellulitis [None]
  - Hepatic enzyme abnormal [None]

NARRATIVE: CASE EVENT DATE: 20201006
